FAERS Safety Report 6870598-2 (Version None)
Quarter: 2010Q3

REPORT INFORMATION
  Report Type: 
  Country: None (occurrence: None)
  Receive Date: 20100723
  Receipt Date: 20100712
  Transmission Date: 20110219
  Serious: Yes (Other)
  Sender: FDA-Public Use
  Company Number: PHHY2010IT46099

PATIENT
  Age: 29 Year
  Sex: Female

DRUGS (5)
  1. DEFEROXAMINE MESYLATE [Suspect]
     Route: 058
  2. DEFEROXAMINE MESYLATE [Suspect]
     Dosage: 12 HR/DAY
  3. DEFERASIROX [Suspect]
     Dosage: 30/MG/KG
  4. DEFERIPRONE [Suspect]
     Dosage: 75 MG/KG IN THREE DIVIDED DOSES
     Route: 048
  5. RED BLOOD CELLS [Concomitant]
     Dosage: 0.41ML

REACTIONS (6)
  - DRUG EXPOSURE DURING PREGNANCY [None]
  - NEUTROPENIA [None]
  - PAIN [None]
  - PYREXIA [None]
  - SERUM FERRITIN INCREASED [None]
  - SKIN REACTION [None]
